FAERS Safety Report 4737335-9 (Version None)
Quarter: 2005Q3

REPORT INFORMATION
  Report Type: 
  Country: None (occurrence: None)
  Receive Date: 20050808
  Receipt Date: 20050727
  Transmission Date: 20060218
  Serious: Yes (Hospitalization, Disabling)
  Sender: FDA-Public Use
  Company Number: PHRM2005FR02185

PATIENT
  Age: 65 Year
  Sex: Male

DRUGS (11)
  1. ZOMETA [Suspect]
     Indication: MULTIPLE MYELOMA
     Dosage: 4 MG, QMO
     Route: 042
     Dates: start: 20010101, end: 20031201
  2. ZOMETA [Suspect]
     Dosage: 4 MG, QMO
     Route: 042
     Dates: start: 20040201, end: 20050601
  3. AREDIA [Suspect]
     Indication: MULTIPLE MYELOMA
     Route: 042
     Dates: start: 20040101, end: 20040101
  4. DECADRON [Concomitant]
     Dosage: UNK, UNK
     Dates: start: 20010417, end: 20030301
  5. LASILIX [Concomitant]
     Dosage: 40 MG, QD
     Route: 048
  6. XATRAL [Concomitant]
     Dosage: 1 DF, QD
     Route: 048
  7. DI-ANTALVIC [Concomitant]
  8. DOLIPRANE [Concomitant]
  9. ARANESP [Concomitant]
  10. VENOFER [Concomitant]
  11. ADRIABLASTIN + VCR + DACARBAZINE [Concomitant]
     Indication: MULTIPLE MYELOMA
     Dosage: 6 COURSES
     Route: 042
     Dates: start: 20010405

REACTIONS (6)
  - ASEPTIC NECROSIS BONE [None]
  - EXERESIS [None]
  - OSTEITIS [None]
  - OSTEOLYSIS [None]
  - TOOTH EXTRACTION [None]
  - TOOTHACHE [None]
